FAERS Safety Report 26183840 (Version 1)
Quarter: 2025Q4

REPORT INFORMATION
  Report Type: Spontaneous
  Country: CN (occurrence: CN)
  Receive Date: 20251221
  Receipt Date: 20251221
  Transmission Date: 20260118
  Serious: Yes (Life-Threatening, Hospitalization)
  Sender: ACCORD
  Company Number: CN-Accord-519019

PATIENT
  Age: 69 Year
  Sex: Male

DRUGS (2)
  1. METHOTREXATE [Suspect]
     Active Substance: METHOTREXATE
     Indication: Psoriasis
     Dosage: LOW-DOSE, THE SECOND DOSE (CUMULATIVE METHOTREXATE DOSE,20 MG)
     Dates: start: 202501
  2. FOLIC ACID [Concomitant]
     Active Substance: FOLIC ACID
     Indication: Vitamin supplementation
     Dates: start: 202501

REACTIONS (10)
  - Staphylococcal infection [Recovering/Resolving]
  - Mucormycosis [Recovering/Resolving]
  - Pulmonary mucormycosis [Recovering/Resolving]
  - Mucocutaneous ulceration [Recovering/Resolving]
  - Skin exfoliation [Recovering/Resolving]
  - Myelosuppression [Recovering/Resolving]
  - Mucocutaneous haemorrhage [Recovering/Resolving]
  - Toxicity to various agents [Unknown]
  - Epistaxis [Recovering/Resolving]
  - Anal haemorrhage [Recovering/Resolving]

NARRATIVE: CASE EVENT DATE: 20250101
